FAERS Safety Report 7754490-7 (Version None)
Quarter: 2011Q3

REPORT INFORMATION
  Report Type: 
  Country: None (occurrence: None)
  Receive Date: 20110915
  Receipt Date: 20110905
  Transmission Date: 20111222
  Serious: Yes (Other)
  Sender: FDA-Public Use
  Company Number: BR-US-EMD SERONO, INC.-7070575

PATIENT
  Sex: Female

DRUGS (7)
  1. TOPIRAMATE [Concomitant]
  2. REBIF [Suspect]
     Indication: RELAPSING-REMITTING MULTIPLE SCLEROSIS
     Dates: start: 20110506
  3. FLUOXETINE [Concomitant]
  4. L-CARNITINE [Concomitant]
  5. CLONAZEPAM [Concomitant]
  6. IBUPROFEN [Concomitant]
  7. LOVAZA [Concomitant]

REACTIONS (7)
  - GLAUCOMA [None]
  - VERTIGO [None]
  - NAUSEA [None]
  - HEADACHE [None]
  - INJECTION SITE ERYTHEMA [None]
  - PAIN [None]
  - INJECTION SITE PAIN [None]
